FAERS Safety Report 15983888 (Version 1)
Quarter: 2019Q1

REPORT INFORMATION
  Report Type: Spontaneous
  Country: US (occurrence: US)
  Receive Date: 20190125
  Receipt Date: 20190125
  Transmission Date: 20190418
  Serious: No
  Sender: FDA-Public Use
  Company Number: None

PATIENT
  Age: 42 Year
  Sex: Male

DRUGS (1)
  1. TEMOZOLOMIDE 5MG CAP [Suspect]
     Active Substance: TEMOZOLOMIDE
     Indication: GLIOBLASTOMA
     Dates: start: 201810

REACTIONS (5)
  - Gait inability [None]
  - Dysstasia [None]
  - Headache [None]
  - Confusional state [None]
  - Coordination abnormal [None]

NARRATIVE: CASE EVENT DATE: 20190116
